FAERS Safety Report 19981348 (Version 3)
Quarter: 2023Q2

REPORT INFORMATION
  Report Type: Spontaneous
  Country: JP (occurrence: JP)
  Receive Date: 20211021
  Receipt Date: 20230604
  Transmission Date: 20230722
  Serious: Yes (Hospitalization, Other)
  Sender: FDA-Public Use
  Company Number: JP-OTSUKA-2021_035691

PATIENT
  Age: 6 Decade

DRUGS (2)
  1. ABILIFY [Suspect]
     Active Substance: ARIPIPRAZOLE
     Indication: Schizophrenia
     Dosage: UNK
     Route: 048
  2. ABILIFY [Suspect]
     Active Substance: ARIPIPRAZOLE
     Dosage: 12MG/DAY
     Route: 048

REACTIONS (4)
  - Sinus node dysfunction [Recovered/Resolved]
  - Neuroleptic malignant syndrome [Recovered/Resolved]
  - Therapy cessation [Unknown]
  - Treatment noncompliance [Unknown]
